FAERS Safety Report 6271849-8 (Version None)
Quarter: 2009Q3

REPORT INFORMATION
  Report Type: 
  Country: None (occurrence: None)
  Receive Date: 20090717
  Receipt Date: 20090707
  Transmission Date: 20100115
  Serious: Yes (Other)
  Sender: FDA-Public Use
  Company Number: PHEH2009US07205

PATIENT
  Sex: Female

DRUGS (2)
  1. DIOVAN [Suspect]
     Indication: HYPERTENSION
     Dosage: 80 MG, UNK
     Dates: start: 20050101
  2. HYDROCHLOROTHIAZIDE [Concomitant]

REACTIONS (9)
  - ANTINUCLEAR ANTIBODY POSITIVE [None]
  - ARTHRALGIA [None]
  - AURICULAR SWELLING [None]
  - ERYTHEMA [None]
  - FATIGUE [None]
  - PAIN IN EXTREMITY [None]
  - SJOGREN'S SYNDROME [None]
  - SYSTEMIC LUPUS ERYTHEMATOSUS [None]
  - ULCERATIVE KERATITIS [None]
